FAERS Safety Report 4622423-8 (Version None)
Quarter: 2005Q1

REPORT INFORMATION
  Report Type: 
  Country: None (occurrence: None)
  Receive Date: 20050324
  Receipt Date: 20050324
  Transmission Date: 20050727
  Serious: Yes (Life-Threatening, Hospitalization)
  Sender: FDA-Public Use
  Company Number: None

PATIENT
  Age: 46 Year
  Sex: Female
  Weight: 61.8 kg

DRUGS (3)
  1. AMPHOTERICIN B [Suspect]
     Indication: MYCOTIC ALLERGY
     Dosage: 250 MG BY MOUTH DAILY
     Dates: start: 20050210, end: 20050317
  2. DIFLUCAN [Concomitant]
  3. NYSTATIN ORAL POWDER [Concomitant]

REACTIONS (3)
  - ASTHENIA [None]
  - GASTROINTESTINAL HAEMORRHAGE [None]
  - HEPATIC FAILURE [None]
